FAERS Safety Report 12771712 (Version 1)
Quarter: 2016Q3

REPORT INFORMATION
  Report Type: Spontaneous
  Country: US (occurrence: US)
  Receive Date: 20160922
  Receipt Date: 20160922
  Transmission Date: 20161109
  Serious: No
  Sender: FDA-Public Use
  Company Number: US-GE HEALTHCARE MEDICAL DIAGNOSTICS-TMAA-PR-1504S-0001

PATIENT

DRUGS (2)
  1. SODIUM PERTECHNETATE TC99M [Suspect]
     Active Substance: TECHNETIUM TC-99M SODIUM PERTECHNETATE
     Indication: DIAGNOSTIC PROCEDURE
  2. SODIUM PERTECHNETATE TC99M [Suspect]
     Active Substance: TECHNETIUM TC-99M SODIUM PERTECHNETATE
     Indication: PRODUCT USED FOR UNKNOWN INDICATION
     Dosage: DOSE NOT REPORTED
     Route: 065
     Dates: start: 20150324, end: 20150324

REACTIONS (1)
  - Skin burning sensation [Unknown]

NARRATIVE: CASE EVENT DATE: 20150325
